FAERS Safety Report 13113055 (Version 3)
Quarter: 2017Q1

REPORT INFORMATION
  Report Type: Spontaneous
  Country: US (occurrence: US)
  Receive Date: 20170113
  Receipt Date: 20170221
  Transmission Date: 20170428
  Serious: No
  Sender: FDA-Public Use
  Company Number: US-BEH-2017077017

PATIENT
  Age: 3 Year
  Sex: Male
  Weight: 16.28 kg

DRUGS (3)
  1. AMICAR [Concomitant]
     Active Substance: AMINOCAPROIC ACID
     Dosage: 1.6 ML, QID PRN
     Route: 048
  2. HAEMATE P [Suspect]
     Active Substance: ANTIHEMOPHILIC FACTOR HUMAN
     Dosage: UNK
     Route: 042
     Dates: start: 20170111
  3. HAEMATE P [Suspect]
     Active Substance: ANTIHEMOPHILIC FACTOR HUMAN
     Indication: VON WILLEBRAND^S DISEASE
     Dosage: 500 RCOF UNITS, QD
     Route: 042
     Dates: start: 20170106, end: 20170124

REACTIONS (2)
  - Respiratory syncytial virus infection [Recovering/Resolving]
  - Respiratory tract congestion [Recovering/Resolving]

NARRATIVE: CASE EVENT DATE: 20170109
